FAERS Safety Report 10082547 (Version 1)
Quarter: 2014Q2

REPORT INFORMATION
  Report Type: Spontaneous
  Country: US (occurrence: US)
  Receive Date: 20140416
  Receipt Date: 20140416
  Transmission Date: 20141212
  Serious: No
  Sender: FDA-Public Use
  Company Number: US-MALLINCKRODT-T201303887

PATIENT
  Sex: Female

DRUGS (1)
  1. METHYLIN [Suspect]
     Indication: PRODUCT USED FOR UNKNOWN INDICATION
     Dosage: UNK
     Dates: start: 20130725

REACTIONS (5)
  - Feeling abnormal [Unknown]
  - Obsessive thoughts [Unknown]
  - Temperature intolerance [Unknown]
  - Anxiety [Unknown]
  - Headache [Recovering/Resolving]
